FAERS Safety Report 21087088 (Version 4)
Quarter: 2022Q4

REPORT INFORMATION
  Report Type: Spontaneous
  Country: IN (occurrence: IN)
  Receive Date: 20220715
  Receipt Date: 20221014
  Transmission Date: 20230113
  Serious: Yes (Other)
  Sender: FDA-Public Use
  Company Number: IN-NOVARTISPH-NVSC2022IN160329

PATIENT
  Age: 54 Year
  Sex: Male

DRUGS (9)
  1. TROPICAMIDE [Suspect]
     Active Substance: TROPICAMIDE
     Indication: Postoperative care
     Dosage: QD
     Route: 047
  2. MOXIFLOXACIN [Suspect]
     Active Substance: MOXIFLOXACIN
     Indication: Postoperative care
     Dosage: QID
     Route: 065
  3. BSS [Suspect]
     Active Substance: CALCIUM CHLORIDE\MAGNESIUM CHLORIDE\POTASSIUM CHLORIDE\SODIUM ACETATE\SODIUM CHLORIDE\SODIUM CITRATE
     Indication: Surgery
     Dosage: UNK
     Route: 047
  4. POVIDONE-IODINE [Suspect]
     Active Substance: POVIDONE-IODINE
     Indication: Preoperative care
     Dosage: UNK (STRENGTH: 5%) (3 TIMES EVERY 5 MINUTES)
     Route: 065
  5. POVIDONE-IODINE [Suspect]
     Active Substance: POVIDONE-IODINE
     Dosage: UNK (STRENGTH: 10%)
     Route: 061
  6. POVIDONE-IODINE [Suspect]
     Active Substance: POVIDONE-IODINE
     Dosage: UNK (STRENGTH: 10%) (VIA SKIN)
     Route: 065
  7. DIFLUPREDNATE [Suspect]
     Active Substance: DIFLUPREDNATE
     Indication: Postoperative care
     Dosage: UNK UNK, QID
     Route: 065
  8. PIPERACILLIN AND TAZOBACTAM [Suspect]
     Active Substance: PIPERACILLIN SODIUM\TAZOBACTAM SODIUM
     Indication: Vitrectomy
     Dosage: UNK
     Route: 031
  9. CEFTAZIDIME [Suspect]
     Active Substance: CEFTAZIDIME
     Indication: Vitrectomy
     Dosage: UNK
     Route: 031

REACTIONS (3)
  - Endophthalmitis [Not Recovered/Not Resolved]
  - Blindness [Not Recovered/Not Resolved]
  - Multiple use of single-use product [Unknown]

NARRATIVE: CASE EVENT DATE: 20220702
